FAERS Safety Report 14403533 (Version 2)
Quarter: 2018Q1

REPORT INFORMATION
  Report Type: Spontaneous
  Country: US (occurrence: US)
  Receive Date: 20180117
  Receipt Date: 20180215
  Transmission Date: 20180509
  Serious: No
  Sender: FDA-Public Use
  Company Number: US-ACTELION-A-NJ2018-165947

PATIENT
  Age: 80 Year
  Sex: Male

DRUGS (3)
  1. VALCHLOR [Suspect]
     Active Substance: MECHLORETHAMINE
     Dosage: THIN FILM TO AFFECTED SKIN DAILY
     Route: 061
     Dates: start: 20180109
  2. BEXAROTENE. [Concomitant]
     Active Substance: BEXAROTENE
  3. VALCHLOR [Suspect]
     Active Substance: MECHLORETHAMINE
     Indication: MYCOSIS FUNGOIDES
     Dosage: UNK UNK, QD
     Route: 061
     Dates: start: 20171130

REACTIONS (8)
  - Pruritus [Unknown]
  - Skin ulcer [Unknown]
  - Condition aggravated [Unknown]
  - Fatigue [Unknown]
  - Nasopharyngitis [Not Recovered/Not Resolved]
  - Application site discolouration [Unknown]
  - Mycosis fungoides [Unknown]
  - Cough [Not Recovered/Not Resolved]
